FAERS Safety Report 23110517 (Version 1)
Quarter: 2023Q4

REPORT INFORMATION
  Report Type: Spontaneous
  Country: CA (occurrence: CA)
  Receive Date: 20231026
  Receipt Date: 20231026
  Transmission Date: 20240110
  Serious: Yes (Other)
  Sender: FDA-Public Use
  Company Number: CA-MYLANLABS-2023M1112944

PATIENT
  Sex: Male

DRUGS (1)
  1. TRASTUZUMAB [Suspect]
     Active Substance: TRASTUZUMAB
     Indication: Breast cancer male
     Dosage: 335 MILLIGRAM, Q28D (1 EVERY 4 WEEKS)
     Route: 042

REACTIONS (2)
  - Deep vein thrombosis [Unknown]
  - Off label use [Unknown]
